FAERS Safety Report 9769407 (Version 2)
Quarter: 2013Q3

REPORT INFORMATION
  Report Type: Spontaneous
  Country: US (occurrence: None)
  Receive Date: 20130906
  Receipt Date: 20130910
  Transmission Date: 20140515
  Serious: Yes (Life-Threatening, Hospitalization, Other)
  Sender: FDA-Public Use
  Company Number: ADR-2013-00872

PATIENT
  Age: 15 Year
  Sex: Male

DRUGS (1)
  1. LIORESAL INTRATHECAL (BACLOFEN INJECTION) 2000 MCG/ML [Suspect]
     Indication: MUSCLE SPASTICITY
     Route: 037

REACTIONS (11)
  - Unresponsive to stimuli [None]
  - Tachycardia [None]
  - Respiratory rate decreased [None]
  - Mental status changes [None]
  - Overdose [None]
  - Respiratory depression [None]
  - Muscular weakness [None]
  - Injury [None]
  - Weight decreased [None]
  - Device computer issue [None]
  - Aphagia [None]
